FAERS Safety Report 6451565-X (Version None)
Quarter: 2009Q4

REPORT INFORMATION
  Report Type: 
  Country: None (occurrence: None)
  Receive Date: 20091123
  Receipt Date: 20091118
  Transmission Date: 20100525
  Serious: Yes (Hospitalization)
  Sender: FDA-Public Use
  Company Number: US-BRISTOL-MYERS SQUIBB COMPANY-14864862

PATIENT
  Age: 48 Year
  Sex: Male
  Weight: 66 kg

DRUGS (2)
  1. CISPLATIN [Suspect]
     Indication: HEAD AND NECK CANCER
     Dosage: START DATE OF COURSE ASSOCIATED WITH EXPEDITED REPORT:10FEB09
     Dates: start: 20090120, end: 20090210
  2. RADIATION THERAPY [Suspect]
     Indication: HEAD AND NECK CANCER
     Dosage: 1DF=12.6 GY FRACTION:70 ELAPSED DAYS:42 START DATE OF COURSE ASSOC WITH EXP REPORT:10FEB09 CYC 2
     Dates: start: 20090120, end: 20090303

REACTIONS (2)
  - DYSPHAGIA [None]
  - PAROTITIS [None]
